FAERS Safety Report 7232902-5 (Version None)
Quarter: 2011Q1

REPORT INFORMATION
  Report Type: 
  Country: None (occurrence: None)
  Receive Date: 20110119
  Receipt Date: 20110107
  Transmission Date: 20110831
  Serious: Yes (Other)
  Sender: FDA-Public Use
  Company Number: PHHY2010US84301

PATIENT
  Sex: Male
  Weight: 54.875 kg

DRUGS (1)
  1. DIOVAN [Suspect]
     Indication: HYPERTENSION
     Dosage: 160 MG, QD
     Route: 048
     Dates: start: 20100608, end: 20101007

REACTIONS (11)
  - WEIGHT DECREASED [None]
  - DIARRHOEA [None]
  - CHOKING [None]
  - COUGH [None]
  - EPISTAXIS [None]
  - GAIT DISTURBANCE [None]
  - RETCHING [None]
  - POLLAKIURIA [None]
  - CONTUSION [None]
  - ANXIETY [None]
  - IRRITABILITY [None]
